FAERS Safety Report 6093546-4 (Version None)
Quarter: 2009Q1

REPORT INFORMATION
  Report Type: 
  Country: None (occurrence: None)
  Receive Date: 20090226
  Receipt Date: 20090217
  Transmission Date: 20090719
  Serious: Yes (Other)
  Sender: FDA-Public Use
  Company Number: CA-JNJFOC-20090204700

PATIENT
  Sex: Female
  Weight: 57 kg

DRUGS (1)
  1. REMICADE [Suspect]
     Indication: DRUG USE FOR UNKNOWN INDICATION
     Route: 042

REACTIONS (6)
  - ANAEMIA [None]
  - ARTHROPOD BITE [None]
  - BLOOD PRESSURE DECREASED [None]
  - CELLULITIS [None]
  - DRUG INEFFECTIVE [None]
  - ERYTHEMA NODOSUM [None]
